FAERS Safety Report 19132292 (Version 2)
Quarter: 2022Q1

REPORT INFORMATION
  Report Type: Spontaneous
  Country: IT (occurrence: IT)
  Receive Date: 20210413
  Receipt Date: 20220107
  Transmission Date: 20220424
  Serious: Yes (Death)
  Sender: FDA-Public Use
  Company Number: None

PATIENT
  Age: 67 Year
  Sex: Female

DRUGS (3)
  1. OXALIPLATIN [Suspect]
     Active Substance: OXALIPLATIN
     Indication: Pancreatic carcinoma
     Dosage: 68 MG
     Route: 013
     Dates: start: 20210121, end: 20210310
  2. FLUOROURACIL [Suspect]
     Active Substance: FLUOROURACIL
     Indication: Pancreatic carcinoma
     Dosage: 1920 MG
     Route: 013
     Dates: start: 20210121, end: 20210310
  3. IRINOTECAN [Suspect]
     Active Substance: IRINOTECAN
     Indication: Pancreatic carcinoma
     Dosage: 120 MG
     Route: 013
     Dates: start: 20210121, end: 20210310

REACTIONS (2)
  - Splenic artery thrombosis [Fatal]
  - Pancreatitis necrotising [Fatal]

NARRATIVE: CASE EVENT DATE: 20210314
